FAERS Safety Report 15784061 (Version 2)
Quarter: 2019Q1

REPORT INFORMATION
  Report Type: Report from Study
  Country: None (occurrence: CA)
  Receive Date: 20190103
  Receipt Date: 20190214
  Transmission Date: 20190417
  Serious: Yes (Other)
  Sender: FDA-Public Use
  Company Number: CA-ABBVIE-18K-028-2557950-00

PATIENT
  Age: 13 Year
  Sex: Female
  Weight: 64 kg

DRUGS (5)
  1. HUMIRA [Suspect]
     Active Substance: ADALIMUMAB
     Indication: CROHN^S DISEASE
     Route: 058
     Dates: start: 20170213, end: 20181030
  2. PIMECROLIMUS. [Concomitant]
     Active Substance: PIMECROLIMUS
     Indication: PRODUCT USED FOR UNKNOWN INDICATION
     Route: 061
  3. HUMIRA [Suspect]
     Active Substance: ADALIMUMAB
     Route: 058
     Dates: start: 20181224
  4. BETAMETASONE LFM [Concomitant]
     Indication: ECZEMA
     Dosage: 0.170 OWT
     Route: 061
  5. VITAMIN D [Concomitant]
     Active Substance: CHOLECALCIFEROL
     Indication: PRODUCT USED FOR UNKNOWN INDICATION
     Route: 048

REACTIONS (7)
  - Purulent discharge [Not Recovered/Not Resolved]
  - Ingrowing nail [Recovering/Resolving]
  - Localised infection [Unknown]
  - Pain in extremity [Not Recovered/Not Resolved]
  - Psoriasis [Recovering/Resolving]
  - Erythema [Not Recovered/Not Resolved]
  - Localised infection [Recovered/Resolved]

NARRATIVE: CASE EVENT DATE: 2018
